FAERS Safety Report 9681239 (Version 2)
Quarter: 2014Q1

REPORT INFORMATION
  Report Type: Spontaneous
  Country: IT (occurrence: IT)
  Receive Date: 20131111
  Receipt Date: 20140109
  Transmission Date: 20141002
  Serious: Yes (Hospitalization)
  Sender: FDA-Public Use
  Company Number: PHHY2013IT128096

PATIENT
  Sex: Male

DRUGS (9)
  1. COTAREG [Suspect]
     Dosage: UNK UKN, UNK
     Dates: start: 20120811, end: 20130810
  2. LASIX [Suspect]
     Dosage: UNK UKN, UNK
     Dates: start: 20120811, end: 20130810
  3. CASODEX [Concomitant]
  4. DILATREND [Concomitant]
  5. CARDIOASPIRIN [Concomitant]
  6. LENDORMIN [Concomitant]
  7. PENTACOL [Concomitant]
  8. NORMIX [Concomitant]
  9. ZYLORIC [Concomitant]

REACTIONS (2)
  - Dehydration [Recovering/Resolving]
  - Hypokalaemia [Recovering/Resolving]
